FAERS Safety Report 7878689-4 (Version None)
Quarter: 2011Q4

REPORT INFORMATION
  Report Type: 
  Country: None (occurrence: None)
  Receive Date: 20111028
  Receipt Date: 20111024
  Transmission Date: 20120403
  Serious: Yes (Death, Hospitalization)
  Sender: FDA-Public Use
  Company Number: B0758312A

PATIENT
  Age: 34 Year
  Sex: Female
  Weight: 55.8832 kg

DRUGS (6)
  1. NITROFURANTOIN [Suspect]
  2. DIPYRONE TAB [Suspect]
  3. VITAMIN (FORMULATION UNKNOWN) (VITAMIN) [Suspect]
  4. FUROSEMIDE [Suspect]
     Dosage: 40 MG/TWICE PER DAY
  5. CEFTRIAXONE [Suspect]
     Indication: PYELONEPHRITIS
     Dosage: INTRAMUSCULAR
     Route: 030
  6. INNOPRAN XL [Suspect]
     Dosage: 40 MG/TWICE PER DAY

REACTIONS (40)
  - LEUKOCYTOSIS [None]
  - RESPIRATORY DISTRESS [None]
  - DEPRESSED LEVEL OF CONSCIOUSNESS [None]
  - CYTOMEGALOVIRUS TEST POSITIVE [None]
  - PARVOVIRUS INFECTION [None]
  - BONE MARROW FAILURE [None]
  - TRACHEOBRONCHITIS [None]
  - CARDIAC FAILURE CONGESTIVE [None]
  - PULMONARY CONGESTION [None]
  - BLOOD PRESSURE DECREASED [None]
  - RENAL FAILURE ACUTE [None]
  - BRONCHOPULMONARY ASPERGILLOSIS [None]
  - SEPTIC SHOCK [None]
  - GENERAL PHYSICAL HEALTH DETERIORATION [None]
  - PLEURAL FIBROSIS [None]
  - CARDIAC ARREST [None]
  - AGRANULOCYTOSIS [None]
  - OLIGOHYDRAMNIOS [None]
  - LEUKOPENIA [None]
  - METABOLIC ACIDOSIS [None]
  - BRONCHOPNEUMONIA [None]
  - NECROTISING BRONCHIOLITIS [None]
  - MATERNAL EXPOSURE DURING PREGNANCY [None]
  - CARDIAC MURMUR [None]
  - AORTIC VALVE INCOMPETENCE [None]
  - FOETAL GROWTH RESTRICTION [None]
  - SMALL FOR DATES BABY [None]
  - PALLOR [None]
  - AGITATION [None]
  - MITRAL VALVE STENOSIS [None]
  - IMMUNOSUPPRESSION [None]
  - LUNG INFECTION [None]
  - CAESAREAN SECTION [None]
  - SHOCK [None]
  - TRICUSPID VALVE INCOMPETENCE [None]
  - ORAL CANDIDIASIS [None]
  - CONVULSION [None]
  - TACHYCARDIA FOETAL [None]
  - CARDIOGENIC SHOCK [None]
  - MULTI-ORGAN FAILURE [None]
